FAERS Safety Report 11233227 (Version 9)
Quarter: 2015Q4

REPORT INFORMATION
  Report Type: Spontaneous
  Country: ES (occurrence: ES)
  Receive Date: 20150701
  Receipt Date: 20151030
  Transmission Date: 20160304
  Serious: Yes (Other)
  Sender: FDA-Public Use
  Company Number: ES-AMGEN-ESPSP2015059040

PATIENT
  Age: 50 Year
  Sex: Male
  Weight: 63 kg

DRUGS (9)
  1. OMEPRAZOLE. [Concomitant]
     Active Substance: OMEPRAZOLE
     Indication: PROPHYLAXIS
     Dosage: 20 MG, 1X/DAY (EVERY 24 HOURS)
  2. ENBREL [Suspect]
     Active Substance: ETANERCEPT
     Indication: ANKYLOSING SPONDYLITIS
     Dosage: 50 MG, WEEKLY (ON FRIDAYS)
     Route: 058
     Dates: start: 20141007
  3. ENBREL [Suspect]
     Active Substance: ETANERCEPT
     Dosage: 50 MG, WEEKLY (ON FRIDAYS)
     Route: 058
  4. METFORMIN [Concomitant]
     Active Substance: METFORMIN HYDROCHLORIDE
     Indication: TYPE 2 DIABETES MELLITUS
     Dosage: 1 TABLET OF 850 MG/DAY
  5. ENBREL [Suspect]
     Active Substance: ETANERCEPT
     Dosage: 50 MG, WEEKLY (ON FRIDAYS)
     Route: 058
  6. ENBREL [Suspect]
     Active Substance: ETANERCEPT
     Dosage: 50 MG, WEEKLY (ON FRIDAYS)
     Route: 065
  7. ENALAPRIL [Concomitant]
     Active Substance: ENALAPRIL
     Indication: HYPERTENSION
     Dosage: 10 MG, 1X/DAY (EVERY 24 HOURS, IN THE MORNING)
  8. ARCOXIA [Concomitant]
     Active Substance: ETORICOXIB
     Indication: ANKYLOSING SPONDYLITIS
     Dosage: 90 MG, 1X/DAY (EVERY 24 HOURS)
  9. SIMVASTATIN. [Concomitant]
     Active Substance: SIMVASTATIN
     Indication: HYPERCHOLESTEROLAEMIA
     Dosage: 40 MG, 1X/DAY (EVERY 24 HOURS)

REACTIONS (16)
  - Arthralgia [Not Recovered/Not Resolved]
  - Personality disorder [Not Recovered/Not Resolved]
  - Injection site haemorrhage [Unknown]
  - Excessive cerumen production [Recovered/Resolved]
  - Musculoskeletal pain [Recovered/Resolved]
  - Diverticulum [Recovering/Resolving]
  - Condition aggravated [Recovered/Resolved]
  - Erythema [Unknown]
  - Injection site erythema [Not Recovered/Not Resolved]
  - Red blood cell sedimentation rate decreased [Recovered/Resolved]
  - Injection site haematoma [Not Recovered/Not Resolved]
  - Haemorrhage [Not Recovered/Not Resolved]
  - Dizziness [Unknown]
  - C-reactive protein decreased [Recovering/Resolving]
  - Injection site pruritus [Not Recovered/Not Resolved]
  - Pharyngitis [Unknown]

NARRATIVE: CASE EVENT DATE: 20141007
